FAERS Safety Report 21878892 (Version 1)
Quarter: 2023Q1

REPORT INFORMATION
  Report Type: Other
  Country: UY (occurrence: None)
  Receive Date: 20230118
  Receipt Date: 20230118
  Transmission Date: 20230417
  Serious: Yes (Other)
  Sender: FDA-Public Use
  Company Number: UY-ROCHE-3265244

PATIENT
  Age: 66 Year
  Sex: Male

DRUGS (7)
  1. CAPECITABINE [Suspect]
     Active Substance: CAPECITABINE
     Indication: Oesophageal carcinoma
     Dosage: THREE SUCCESSIVE PREOPERATIVE CYCLES
     Route: 065
  2. OXALIPLATIN [Suspect]
     Active Substance: OXALIPLATIN
     Indication: Oesophageal carcinoma
     Dosage: THREE SUCCESSIVE PREOPERATIVE CYCLES
     Route: 065
  3. EPIRUBICIN [Suspect]
     Active Substance: EPIRUBICIN
     Indication: Oesophageal carcinoma
     Dosage: THREE SUCCESSIVE PREOPERATIVE CYCLES
     Route: 065
  4. ASPIRIN [Concomitant]
     Active Substance: ASPIRIN
  5. ENALAPRIL [Concomitant]
     Active Substance: ENALAPRIL
  6. BISOPROLOL [Concomitant]
     Active Substance: BISOPROLOL
  7. ATORVASTATIN [Concomitant]
     Active Substance: ATORVASTATIN

REACTIONS (4)
  - Myocardial ischaemia [Unknown]
  - Coronary artery stenosis [Unknown]
  - Post angioplasty restenosis [Unknown]
  - Coronary artery stenosis [Unknown]
